FAERS Safety Report 16825717 (Version 3)
Quarter: 2021Q2

REPORT INFORMATION
  Report Type: Spontaneous
  Country: US (occurrence: US)
  Receive Date: 20190919
  Receipt Date: 20210625
  Transmission Date: 20210716
  Serious: No
  Sender: FDA-Public Use
  Company Number: US-AMGEN-USASP2019147470

PATIENT
  Age: 55 Year
  Sex: Female

DRUGS (16)
  1. ENALAPRIL MALEATE. [Concomitant]
     Active Substance: ENALAPRIL MALEATE
     Dosage: 10 MILLIGRAM, QD
     Route: 048
     Dates: start: 20201223
  2. ZINC. [Concomitant]
     Active Substance: ZINC
     Dosage: UNK
     Dates: start: 20200604
  3. FUROSEMIDE. [Concomitant]
     Active Substance: FUROSEMIDE
     Dosage: 20 MILLIGRAM, QDT, AS NEEDED
     Route: 048
     Dates: start: 20201102
  4. LEVOTHYROXINE. [Concomitant]
     Active Substance: LEVOTHYROXINE
     Dosage: 25 MICROGRAM, QD
     Route: 048
     Dates: start: 20201215
  5. OMEGA 3,6,9 [Concomitant]
     Dosage: 1200 MILLIGRAM, QD
     Route: 048
     Dates: start: 20191219
  6. MAGNESIUM OXIDE. [Concomitant]
     Active Substance: MAGNESIUM OXIDE
     Dosage: UNK
     Dates: start: 20201223
  7. PRAVASTATIN. [Concomitant]
     Active Substance: PRAVASTATIN
  8. REPATHA [Suspect]
     Active Substance: EVOLOCUMAB
     Dosage: 420 MILLIGRAM, QMO
     Route: 065
     Dates: start: 202103
  9. VITAMIN D3 [Concomitant]
     Active Substance: CHOLECALCIFEROL
     Dosage: 25 MICROGRAM
     Route: 048
     Dates: start: 20190304
  10. REPATHA [Suspect]
     Active Substance: EVOLOCUMAB
     Indication: TYPE IIA HYPERLIPIDAEMIA
     Dosage: 140 MILLIGRAM, Q2WK
     Route: 065
     Dates: start: 201903, end: 201908
  11. ASPIRIN 81 [Concomitant]
     Active Substance: ASPIRIN
     Dosage: 81 MILLIGRAM, QD
     Route: 048
     Dates: start: 20190304
  12. VITAMIN B COMPLEX [Concomitant]
     Active Substance: CYANOCOBALAMIN\DEXPANTHENOL\NIACINAMIDE\PYRIDOXINE HYDROCHLORIDE\RIBOFLAVIN 5^-PHOSPHATE SODIUM\THIAMINE HYDROCHLORIDE\VITAMIN B COMPLEX
     Dosage: UNK
     Dates: start: 20201223
  13. ALLEGRA ALLERGY [Concomitant]
     Active Substance: FEXOFENADINE HYDROCHLORIDE
     Dosage: UNK UNK, QD
     Dates: start: 20200415
  14. APIDRA SOLOSTAR [Concomitant]
     Active Substance: INSULIN GLULISINE
     Dosage: U?100 INSULIN 100 UNIT/ML
     Route: 058
     Dates: start: 20201009
  15. SELENIUM [Concomitant]
     Active Substance: SELENIUM
     Dosage: 200 MICROGRAM, QD
     Route: 048
  16. TRESIBA [Concomitant]
     Active Substance: INSULIN DEGLUDEC
     Dosage: U?100 INSULIN 100 UNIT/ML (3 ML)
     Route: 058
     Dates: start: 20201210

REACTIONS (19)
  - Gastrointestinal disorder [Unknown]
  - Joint swelling [Unknown]
  - Postpericardiotomy syndrome [Unknown]
  - Alopecia [Recovered/Resolved]
  - Nephropathy [Recovering/Resolving]
  - Ear disorder [Recovered/Resolved]
  - Nausea [Recovering/Resolving]
  - Asthenia [Unknown]
  - Sinusitis [Not Recovered/Not Resolved]
  - Influenza [Recovered/Resolved]
  - Chest pain [Unknown]
  - Oedema peripheral [Unknown]
  - Abdominal discomfort [Unknown]
  - Hyperhidrosis [Recovered/Resolved]
  - Chest discomfort [Unknown]
  - Upper respiratory tract infection [Unknown]
  - Decreased appetite [Unknown]
  - Weight decreased [Recovering/Resolving]
  - Myalgia [Unknown]

NARRATIVE: CASE EVENT DATE: 2019
